FAERS Safety Report 15385177 (Version 1)
Quarter: 2018Q3

REPORT INFORMATION
  Report Type: Report from Study
  Country: DE (occurrence: DE)
  Receive Date: 20180914
  Receipt Date: 20180914
  Transmission Date: 20181010
  Serious: Yes (Life-Threatening, Hospitalization)
  Sender: FDA-Public Use
  Company Number: DE-AMGEN-DEUNI2018126466

PATIENT
  Age: 74 Year
  Sex: Male
  Weight: 74 kg

DRUGS (20)
  1. FOLINIC ACID [Suspect]
     Active Substance: LEUCOVORIN
     Dosage: 744 MG, UNK
     Route: 065
     Dates: start: 20180615
  2. PREDNISOLONE. [Concomitant]
     Active Substance: PREDNISOLONE
     Indication: COLITIS ULCERATIVE
     Dosage: 7.5?75 MG QD
     Dates: start: 20170701, end: 20180906
  3. IRINOTECAN [Suspect]
     Active Substance: IRINOTECAN
     Indication: COLORECTAL CANCER METASTATIC
     Dosage: 342 MG, UNK
     Route: 065
     Dates: start: 20180430
  4. PANITUMUMAB [Suspect]
     Active Substance: PANITUMUMAB
     Indication: COLORECTAL CANCER METASTATIC
     Dosage: 444 MG, UNK
     Route: 042
     Dates: start: 20180516
  5. IRINOTECAN [Suspect]
     Active Substance: IRINOTECAN
     Dosage: 338 MG, UNK
     Route: 065
     Dates: start: 20180516
  6. FLUOROURACIL. [Suspect]
     Active Substance: FLUOROURACIL
     Indication: COLORECTAL CANCER METASTATIC
     Dosage: 1520 MG, UNK
     Route: 040
     Dates: start: 20180430
  7. AMOXICILLIN. [Concomitant]
     Active Substance: AMOXICILLIN
     Indication: PROPHYLAXIS
     Dosage: 875 MG, BID
     Route: 048
     Dates: start: 20180613, end: 20180620
  8. BISOPROLOL?RATIOPHARM [Concomitant]
     Indication: TACHYCARDIA
     Dosage: 2.5 MG, QD
     Route: 048
     Dates: start: 20180517
  9. PANITUMUMAB [Suspect]
     Active Substance: PANITUMUMAB
     Dosage: 432 MG, UNK
     Route: 042
     Dates: start: 20180615
  10. IRINOTECAN [Suspect]
     Active Substance: IRINOTECAN
     Dosage: 334 MG, UNK
     Route: 065
     Dates: start: 20180615
  11. FOLINIC ACID [Suspect]
     Active Substance: LEUCOVORIN
     Dosage: 752 MG, UNK
     Route: 065
     Dates: start: 20180516
  12. FLUOROURACIL. [Suspect]
     Active Substance: FLUOROURACIL
     Dosage: 752 MG, UNK
     Route: 040
     Dates: start: 20180516
  13. FLUOROURACIL. [Suspect]
     Active Substance: FLUOROURACIL
     Dosage: 4512 MG, UNK
     Route: 042
     Dates: start: 20180516
  14. FOLINIC ACID [Suspect]
     Active Substance: LEUCOVORIN
     Indication: COLORECTAL CANCER METASTATIC
     Dosage: 760 MG, UNK
     Route: 065
     Dates: start: 20180430
  15. SPIRIVA [Concomitant]
     Active Substance: TIOTROPIUM BROMIDE MONOHYDRATE
     Indication: CHRONIC OBSTRUCTIVE PULMONARY DISEASE
     Dosage: 18 MUG, QD
     Route: 055
     Dates: start: 20150101
  16. FENTANYL. [Concomitant]
     Active Substance: FENTANYL
     Indication: PAIN
     Dosage: 12.5 MUG, UNK
     Route: 062
     Dates: start: 20160710
  17. FLUOROURACIL. [Suspect]
     Active Substance: FLUOROURACIL
     Dosage: 4464 MG, UNK
     Route: 042
     Dates: start: 20180615
  18. MINOCYCLIN?RATIOPHARM [Concomitant]
     Indication: PROPHYLAXIS
     Dosage: 50 MG, BID
     Route: 048
     Dates: start: 20180516
  19. FLUOROURACIL. [Suspect]
     Active Substance: FLUOROURACIL
     Dosage: 2280 MG, UNK
     Route: 042
     Dates: start: 20180430
  20. FLUOROURACIL. [Suspect]
     Active Substance: FLUOROURACIL
     Dosage: 744 MG, UNK
     Route: 040
     Dates: start: 20180615

REACTIONS (1)
  - Colitis [Recovered/Resolved]

NARRATIVE: CASE EVENT DATE: 20180902
